FAERS Safety Report 8336398-1 (Version None)
Quarter: 2012Q2

REPORT INFORMATION
  Report Type: 
  Country: None (occurrence: None)
  Receive Date: 20120504
  Receipt Date: 20120430
  Transmission Date: 20120825
  Serious: Yes (Hospitalization)
  Sender: FDA-Public Use
  Company Number: PHEH2012US009260

PATIENT
  Sex: Male

DRUGS (1)
  1. SANDOSTATIN LAR [Suspect]
     Indication: RENAL CANCER
     Dosage: 30 MG, UNK
     Route: 030
     Dates: start: 20111222

REACTIONS (1)
  - OBSTRUCTION [None]
